FAERS Safety Report 8208401-0 (Version None)
Quarter: 2012Q1

REPORT INFORMATION
  Report Type: 
  Country: None (occurrence: None)
  Receive Date: 20120227
  Receipt Date: 20111118
  Transmission Date: 20120608
  Serious: No
  Sender: FDA-Public Use
  Company Number: 339762

PATIENT
  Age: 63 Year
  Sex: Female

DRUGS (1)
  1. VICTOZA [Suspect]
     Indication: GLUCOSE TOLERANCE IMPAIRED
     Dosage: UNK, SUBCUTANEOUS
     Route: 058
     Dates: start: 20110601

REACTIONS (2)
  - TREMOR [None]
  - DECREASED APPETITE [None]
